FAERS Safety Report 8521413-2 (Version None)
Quarter: 2012Q3

REPORT INFORMATION
  Report Type: 
  Country: None (occurrence: None)
  Receive Date: 20120719
  Receipt Date: 20120717
  Transmission Date: 20120928
  Serious: No
  Sender: FDA-Public Use
  Company Number: US-PFIZER INC-2012172690

PATIENT
  Age: 66 Year
  Sex: Female
  Weight: 72.562 kg

DRUGS (3)
  1. CHANTIX [Suspect]
     Indication: SMOKING CESSATION THERAPY
     Dosage: UNK
     Dates: end: 20110501
  2. EFFEXOR XR [Concomitant]
     Dosage: 150 MG, UNK
  3. PRISTIQ [Concomitant]
     Dosage: UNK

REACTIONS (1)
  - NAUSEA [None]
